FAERS Safety Report 25400559 (Version 1)
Quarter: 2025Q2

REPORT INFORMATION
  Report Type: Report from Study
  Country: ES (occurrence: ES)
  Receive Date: 20250605
  Receipt Date: 20250605
  Transmission Date: 20250716
  Serious: Yes (Other)
  Sender: AUROBINDO
  Company Number: ES-AUROBINDO-AUR-APL-2023-042153

PATIENT
  Age: 77 Year
  Sex: Female

DRUGS (6)
  1. MOXIFLOXACIN [Suspect]
     Active Substance: MOXIFLOXACIN
     Indication: Neurotrophic keratopathy
     Route: 065
  2. DOXYCYCLINE [Suspect]
     Active Substance: DOXYCYCLINE
     Indication: Neurotrophic keratopathy
     Route: 048
  3. NICERGOLINE [Concomitant]
     Active Substance: NICERGOLINE
     Indication: Neurotrophic keratopathy
     Dosage: 10 MILLIGRAM, TWO TIMES A DAY
     Route: 065
  4. VALACYCLOVIR HYDROCHLORIDE [Concomitant]
     Active Substance: VALACYCLOVIR HYDROCHLORIDE
     Indication: Neurotrophic keratopathy
     Route: 048
  5. CHLORAMPHENICOL [Concomitant]
     Active Substance: CHLORAMPHENICOL
     Indication: Neurotrophic keratopathy
     Route: 048
  6. DEXAMETHASONE [Concomitant]
     Active Substance: DEXAMETHASONE
     Indication: Neurotrophic keratopathy
     Route: 065

REACTIONS (1)
  - Drug ineffective [Unknown]
